FAERS Safety Report 7996294-6 (Version None)
Quarter: 2011Q4

REPORT INFORMATION
  Report Type: 
  Country: None (occurrence: None)
  Receive Date: 20111220
  Receipt Date: 20101222
  Transmission Date: 20120403
  Serious: Yes (Other)
  Sender: FDA-Public Use
  Company Number: US-B.I. PHARMACEUTICALS,INC./RIDGEFIELD-2011-EU-01140GL

PATIENT
  Age: 85 Year
  Sex: Female

DRUGS (5)
  1. DIPHENHYDRAMINE HCL [Suspect]
     Indication: SLEEP DISORDER
     Dosage: 1 ANZ
     Route: 048
     Dates: start: 20091201, end: 20101201
  2. CARVEDILOL [Suspect]
     Indication: BLOOD PRESSURE
     Dosage: 6.25 MG
     Route: 065
  3. TELMISARTAN [Suspect]
     Indication: PRODUCT USED FOR UNKNOWN INDICATION
     Dosage: 80 MG
     Route: 065
  4. AMLODIPINE BESYLATE [Suspect]
     Indication: BLOOD PRESSURE
     Dosage: 10 MG
     Route: 048
  5. ASPIRIN [Concomitant]

REACTIONS (5)
  - SYNCOPE [None]
  - OFF LABEL USE [None]
  - DIZZINESS [None]
  - FALL [None]
  - WRONG TECHNIQUE IN DRUG USAGE PROCESS [None]
